FAERS Safety Report 7659954-2 (Version None)
Quarter: 2011Q3

REPORT INFORMATION
  Report Type: 
  Country: None (occurrence: None)
  Receive Date: 20110805
  Receipt Date: 20110728
  Transmission Date: 20111222
  Serious: Yes (Death, Other)
  Sender: FDA-Public Use
  Company Number: US-BAYER-201010455NA

PATIENT
  Age: 66 Year
  Sex: Female
  Weight: 59 kg

DRUGS (19)
  1. MIDAZOLAM HCL [Concomitant]
     Dosage: UNK
     Route: 042
     Dates: start: 20000918, end: 20000918
  2. KANTREX [Concomitant]
     Dosage: 1 G, UNK
     Route: 042
     Dates: start: 20000918, end: 20000918
  3. PRIMACOR [Concomitant]
     Dosage: UNK
     Route: 042
     Dates: start: 20000918, end: 20000918
  4. FRESH FROZEN PLASMA [Concomitant]
     Dosage: 16 U, ONCE
     Route: 042
     Dates: start: 20000918
  5. LASIX [Concomitant]
     Dosage: 40 MG, QD
  6. SYNTHROID [Concomitant]
     Dosage: 0.175 ONE DAILY
     Route: 048
  7. CONTRAST MEDIA [Concomitant]
     Indication: CATHETERISATION CARDIAC
     Dosage: UNK
     Dates: start: 20000914
  8. COUMADIN [Concomitant]
     Dosage: 2 MG, QD
     Route: 048
  9. TRASYLOL [Suspect]
     Indication: TRICUSPID VALVE REPAIR
     Dosage: 50 ML/HR INFUSION
     Route: 042
     Dates: start: 20000918, end: 20000918
  10. TRASYLOL [Suspect]
     Indication: MITRAL VALVE REPLACEMENT
     Dosage: 200 ML, ONCE LOADING DOSE
     Route: 042
     Dates: start: 20000918, end: 20000918
  11. OMNIPAQUE 140 [Concomitant]
     Indication: CATHETERISATION CARDIAC
     Dosage: 75 ML, UNK
     Dates: start: 20000914
  12. COZAAR [Concomitant]
     Dosage: 25 MG, BID
     Route: 048
  13. DOBUTAMINE HCL [Concomitant]
     Dosage: UNK
     Route: 042
     Dates: start: 20000918, end: 20000918
  14. TRASYLOL [Suspect]
     Indication: AORTIC VALVE REPLACEMENT
     Dosage: 200 ML, ONCE CARDIOPULMONARY BYPASS PRIME
     Dates: start: 20000918, end: 20000918
  15. PREVACID [Concomitant]
     Dosage: 30 MG, QD
     Route: 048
  16. PROTAMINE [Concomitant]
     Dosage: UNK
     Route: 042
     Dates: start: 20000918, end: 20000918
  17. RED BLOOD CELLS [Concomitant]
     Dosage: 9 U, ONCE
     Route: 042
     Dates: start: 20000918
  18. HEPARIN [Concomitant]
     Dosage: UNK
     Route: 042
     Dates: start: 20000918, end: 20000918
  19. THROMBIN LOCAL SOLUTION [Concomitant]
     Dosage: UNK
     Route: 042
     Dates: start: 20000918, end: 20000918

REACTIONS (13)
  - HEPATIC FUNCTION ABNORMAL [None]
  - RENAL IMPAIRMENT [None]
  - INJURY [None]
  - ANXIETY [None]
  - RENAL INJURY [None]
  - STRESS [None]
  - UNEVALUABLE EVENT [None]
  - DEATH [None]
  - RENAL FAILURE [None]
  - FEAR [None]
  - ANHEDONIA [None]
  - PAIN [None]
  - EMOTIONAL DISTRESS [None]
